FAERS Safety Report 8742310 (Version 4)
Quarter: 2013Q1

REPORT INFORMATION
  Report Type: Spontaneous
  Country: JP (occurrence: JP)
  Receive Date: 20120824
  Receipt Date: 20130110
  Transmission Date: 20140127
  Serious: Yes (Life-Threatening, Hospitalization)
  Sender: FDA-Public Use
  Company Number: JP-B.I. PHARMACEUTICALS,INC./RIDGEFIELD-2012-BP-15439NB

PATIENT
  Age: 76 Year
  Sex: Male
  Weight: 56.2 kg

DRUGS (10)
  1. PRAZAXA [Suspect]
     Indication: CEREBRAL INFARCTION
     Dosage: 220 MG
     Route: 048
     Dates: start: 20120702, end: 20120708
  2. PRAZAXA [Suspect]
     Indication: ATRIAL FIBRILLATION
  3. ALMARL [Concomitant]
     Dosage: 10 MG
     Route: 048
     Dates: end: 20120708
  4. SUNRYTHM [Concomitant]
     Dosage: 50 MG
     Route: 048
     Dates: end: 20120708
  5. KETAS [Concomitant]
     Dosage: 30 MG
     Route: 048
     Dates: end: 20120708
  6. CEPHADOL [Concomitant]
     Dosage: 75 MG
     Route: 048
     Dates: end: 20120708
  7. CO-DIO [Concomitant]
     Route: 048
     Dates: end: 20120708
  8. ATELEC [Concomitant]
     Dosage: 10 MG
     Route: 048
     Dates: end: 20120708
  9. PINATOS [Concomitant]
     Route: 048
     Dates: end: 20120708
  10. ALISRYTHM [Concomitant]
     Route: 048
     Dates: end: 20120708

REACTIONS (4)
  - Sepsis [Recovered/Resolved]
  - Tumour haemorrhage [Recovered/Resolved]
  - Muscular weakness [Recovered/Resolved]
  - Blood creatine phosphokinase increased [Recovered/Resolved]
